FAERS Safety Report 10710519 (Version 1)
Quarter: 2015Q1

REPORT INFORMATION
  Report Type: Spontaneous
  Country: US (occurrence: US)
  Receive Date: 20150114
  Receipt Date: 20150114
  Transmission Date: 20150721
  Serious: No
  Sender: FDA-Public Use
  Company Number: US-SHIRE-US201500191

PATIENT
  Sex: Male
  Weight: 90.7 kg

DRUGS (2)
  1. VYVANSE [Suspect]
     Active Substance: LISDEXAMFETAMINE DIMESYLATE
     Indication: DISTURBANCE IN ATTENTION
     Dosage: ^25 MG^, 1X/DAY:QD
     Route: 048
     Dates: start: 2011, end: 2011
  2. VYVANSE [Suspect]
     Active Substance: LISDEXAMFETAMINE DIMESYLATE
     Indication: MEMORY IMPAIRMENT
     Dosage: 50 MG, 1X/DAY:QD
     Route: 048
     Dates: start: 2011, end: 201409

REACTIONS (8)
  - Disturbance in attention [Not Recovered/Not Resolved]
  - Memory impairment [Not Recovered/Not Resolved]
  - Anxiety [Recovered/Resolved]
  - Drug dose omission [Not Recovered/Not Resolved]
  - Incorrect dose administered [Recovered/Resolved]
  - Feeling abnormal [Not Recovered/Not Resolved]
  - Paranoia [Not Recovered/Not Resolved]
  - Decreased appetite [Recovered/Resolved]

NARRATIVE: CASE EVENT DATE: 2011
